FAERS Safety Report 8480208-9 (Version None)
Quarter: 2012Q2

REPORT INFORMATION
  Report Type: 
  Country: None (occurrence: None)
  Receive Date: 20120629
  Receipt Date: 20120622
  Transmission Date: 20120825
  Serious: Yes (Hospitalization)
  Sender: FDA-Public Use
  Company Number: US-ASTRAZENECA-2011SE44238

PATIENT
  Age: 41 Year
  Sex: Female

DRUGS (2)
  1. SEROQUEL [Suspect]
     Indication: SLEEP DISORDER
     Route: 048
  2. PRILOSEC [Suspect]
     Route: 048

REACTIONS (4)
  - BACK PAIN [None]
  - APPARENT DEATH [None]
  - SLEEP DISORDER [None]
  - DRUG INEFFECTIVE FOR UNAPPROVED INDICATION [None]
